FAERS Safety Report 15325276 (Version 2)
Quarter: 2018Q3

REPORT INFORMATION
  Report Type: Spontaneous
  Country: US (occurrence: US)
  Receive Date: 20180828
  Receipt Date: 20180918
  Transmission Date: 20181010
  Serious: Yes (Other)
  Sender: FDA-Public Use
  Company Number: US-AUROBINDO-AUR-APU-2018-042306

PATIENT
  Sex: Female

DRUGS (2)
  1. MAXIM                              /01257001/ [Concomitant]
     Active Substance: DIENOGEST\ETHINYL ESTRADIOL
     Indication: GASTROOESOPHAGEAL REFLUX DISEASE
     Dosage: UNK
     Route: 065
  2. GABAPENTIN CAPSULES 100 MG [Suspect]
     Active Substance: GABAPENTIN
     Indication: NEUROPATHY PERIPHERAL
     Dosage: UNK
     Route: 065
     Dates: start: 20180714

REACTIONS (7)
  - Neuropathy peripheral [Unknown]
  - Eye disorder [Unknown]
  - Tenderness [Unknown]
  - Drug ineffective [Unknown]
  - Myalgia [Unknown]
  - Hair texture abnormal [Unknown]
  - Product substitution issue [Unknown]
